FAERS Safety Report 24726460 (Version 2)
Quarter: 2024Q4

REPORT INFORMATION
  Report Type: Spontaneous
  Country: CN (occurrence: CN)
  Receive Date: 20241212
  Receipt Date: 20241213
  Transmission Date: 20250115
  Serious: Yes (Life-Threatening, Hospitalization, Other)
  Sender: BIOGEN
  Company Number: CN-BAT-2024BAT001119

PATIENT
  Age: 51 Year
  Sex: Female
  Weight: 55.5 kg

DRUGS (3)
  1. TOFIDENCE [Suspect]
     Active Substance: TOCILIZUMAB-BAVI
     Indication: Rheumatoid arthritis
     Dosage: ONCE ONLY
     Route: 041
     Dates: start: 20240927, end: 20240927
  2. METHOTREXATE [Concomitant]
     Active Substance: METHOTREXATE
     Indication: Rheumatoid arthritis
     Dates: start: 2018, end: 20241021
  3. PREDNISONE [Concomitant]
     Active Substance: PREDNISONE
     Indication: Rheumatoid arthritis
     Dosage: 5-10 MG
     Dates: start: 2008, end: 20241021

REACTIONS (1)
  - Lower gastrointestinal perforation [Recovering/Resolving]

NARRATIVE: CASE EVENT DATE: 20241016
